FAERS Safety Report 10202142 (Version 2)
Quarter: 2014Q2

REPORT INFORMATION
  Report Type: Spontaneous
  Country: US (occurrence: US)
  Receive Date: 20140528
  Receipt Date: 20140604
  Transmission Date: 20141212
  Serious: Yes (Death)
  Sender: FDA-Public Use
  Company Number: US-GLAXOSMITHKLINE-A1074649A

PATIENT
  Age: 65 Year
  Sex: Male

DRUGS (1)
  1. AVANDIA [Suspect]
     Indication: DIABETES MELLITUS
     Dosage: 8MG PER DAY
     Route: 048
     Dates: start: 2003, end: 20090722

REACTIONS (3)
  - Cardio-respiratory arrest [Fatal]
  - Cardiac arrest [Unknown]
  - Cardiovascular disorder [Unknown]
